FAERS Safety Report 23055134 (Version 1)
Quarter: 2023Q4

REPORT INFORMATION
  Report Type: Spontaneous
  Country: US (occurrence: None)
  Receive Date: 20231011
  Receipt Date: 20231011
  Transmission Date: 20240109
  Serious: Yes (Hospitalization, Disabling)
  Sender: FDA-Public Use
  Company Number: None

PATIENT
  Age: 19 Year
  Sex: Female
  Weight: 55.8 kg

DRUGS (1)
  1. ALEVE [Suspect]
     Active Substance: NAPROXEN SODIUM
     Indication: Headache
     Dates: start: 20230208, end: 20230208

REACTIONS (4)
  - Swelling face [None]
  - Blood urine present [None]
  - Infectious mononucleosis [None]
  - Bilirubin urine [None]

NARRATIVE: CASE EVENT DATE: 20230208
